FAERS Safety Report 22807462 (Version 5)
Quarter: 2023Q4

REPORT INFORMATION
  Report Type: Report from Study
  Country: US (occurrence: US)
  Receive Date: 20230810
  Receipt Date: 20231009
  Transmission Date: 20240110
  Serious: Yes (Hospitalization)
  Sender: FDA-Public Use
  Company Number: US-TAKEDA-2023TUS077822

PATIENT
  Age: 71 Year
  Sex: Male

DRUGS (2)
  1. MARIBAVIR [Suspect]
     Active Substance: MARIBAVIR
     Indication: Fibrous histiocytoma
     Dosage: 2 DOSAGE FORM, BID
     Route: 048
     Dates: start: 20230712
  2. MARIBAVIR [Suspect]
     Active Substance: MARIBAVIR
     Indication: Malignant mast cell neoplasm
     Dosage: 2 DOSAGE FORM, BID
     Route: 048

REACTIONS (4)
  - Illness [Unknown]
  - Bedridden [Unknown]
  - Eating disorder [Unknown]
  - Product use in unapproved indication [Unknown]

NARRATIVE: CASE EVENT DATE: 20230712
